FAERS Safety Report 5519068-4 (Version None)
Quarter: 2007Q4

REPORT INFORMATION
  Report Type: 
  Country: None (occurrence: None)
  Receive Date: 20071116
  Receipt Date: 20071114
  Transmission Date: 20080405
  Serious: Yes (Other)
  Sender: FDA-Public Use
  Company Number: GB-BRISTOL-MYERS SQUIBB COMPANY-13981808

PATIENT
  Age: 56 Year
  Sex: Male
  Weight: 70 kg

DRUGS (7)
  1. IRBESARTAN [Suspect]
     Indication: DRESSLER'S SYNDROME
     Route: 048
     Dates: start: 20071003, end: 20071003
  2. ASPIRIN [Concomitant]
  3. ATORVASTATIN CALCIUM [Concomitant]
     Route: 048
  4. CLOPIDOGREL BISULFATE [Concomitant]
  5. CO-CODAMOL [Concomitant]
     Route: 048
  6. IBUPROFEN [Concomitant]
     Indication: PAIN
     Route: 048
  7. RAMIPRIL [Concomitant]
     Dates: start: 20071002

REACTIONS (1)
  - ANAPHYLACTIC REACTION [None]
